FAERS Safety Report 5078500-3 (Version None)
Quarter: 2006Q3

REPORT INFORMATION
  Report Type: 
  Country: None (occurrence: None)
  Receive Date: 20060808
  Receipt Date: 20060724
  Transmission Date: 20061208
  Serious: Yes (Other)
  Sender: FDA-Public Use
  Company Number: C-06-0039

PATIENT
  Age: 38 Year
  Sex: Female
  Weight: 45.8133 kg

DRUGS (2)
  1. NYSTATIN [Suspect]
     Indication: GASTROINTESTINAL CANDIDIASIS
     Dosage: 2 TSP, 2X DAY, ORAL
     Route: 048
     Dates: start: 20060706, end: 20060713
  2. VITAMINS [Concomitant]

REACTIONS (9)
  - DRY EYE [None]
  - ERYTHEMA [None]
  - EYE PAIN [None]
  - GLOSSODYNIA [None]
  - HEADACHE [None]
  - ORAL MUCOSAL DISORDER [None]
  - PHARMACEUTICAL PRODUCT COMPLAINT [None]
  - SWELLING FACE [None]
  - VISION BLURRED [None]
